FAERS Safety Report 23330623 (Version 4)
Quarter: 2024Q2

REPORT INFORMATION
  Report Type: Spontaneous
  Country: GB (occurrence: GB)
  Receive Date: 20231222
  Receipt Date: 20240620
  Transmission Date: 20240716
  Serious: Yes (Hospitalization, Other)
  Sender: FDA-Public Use
  Company Number: GB-MEDAC-2023002143

PATIENT
  Sex: Female

DRUGS (12)
  1. CARBOPLATIN [Suspect]
     Active Substance: CARBOPLATIN
     Dosage: NOT APPLICABLE (COMPANY SUSPECT EXCLUDED)
     Dates: start: 2023, end: 2023
  2. CARBOPLATIN [Suspect]
     Active Substance: CARBOPLATIN
     Dosage: NOT APPLICABLE (COMPANY SUSPECT EXCLUDED)
     Dates: start: 2023, end: 2023
  3. CARBOPLATIN [Suspect]
     Active Substance: CARBOPLATIN
     Indication: Triple negative breast cancer
     Dosage: 4 CYCLES
     Route: 065
     Dates: start: 2023
  4. CARBOPLATIN [Suspect]
     Active Substance: CARBOPLATIN
     Indication: Metaplastic breast carcinoma
  5. CYCLOPHOSPHAMIDE [Suspect]
     Active Substance: CYCLOPHOSPHAMIDE
     Indication: Triple negative breast cancer
     Dosage: 4 CYCLES
     Route: 065
     Dates: start: 2023
  6. CYCLOPHOSPHAMIDE [Suspect]
     Active Substance: CYCLOPHOSPHAMIDE
     Indication: Metaplastic breast carcinoma
  7. EPIRUBICIN [Suspect]
     Active Substance: EPIRUBICIN
     Dosage: NOT APPLICABLE (COMPANY SUSPECT EXCLUDED)
     Dates: start: 2023
  8. EPIRUBICIN [Suspect]
     Active Substance: EPIRUBICIN
     Indication: Triple negative breast cancer
     Dosage: 4 CYCLES
     Route: 065
     Dates: start: 2023
  9. KEYTRUDA [Suspect]
     Active Substance: PEMBROLIZUMAB
     Indication: Triple negative breast cancer
     Dosage: 4 CYCLES
     Route: 065
     Dates: start: 2023, end: 20230523
  10. KEYTRUDA [Suspect]
     Active Substance: PEMBROLIZUMAB
     Indication: Metaplastic breast carcinoma
  11. PACLITAXEL [Suspect]
     Active Substance: PACLITAXEL
     Indication: Triple negative breast cancer
     Dosage: 4 CYCLES
     Route: 065
     Dates: start: 2023, end: 2023
  12. PACLITAXEL [Suspect]
     Active Substance: PACLITAXEL
     Indication: Metaplastic breast carcinoma

REACTIONS (6)
  - Hypertransaminasaemia [Recovering/Resolving]
  - Pneumonitis [Recovering/Resolving]
  - Hepatic function abnormal [Recovering/Resolving]
  - Drug ineffective [Unknown]
  - Therapy non-responder [Unknown]
  - Neoplasm progression [Unknown]

NARRATIVE: CASE EVENT DATE: 20230101
